FAERS Safety Report 4620119-X (Version None)
Quarter: 2005Q1

REPORT INFORMATION
  Report Type: 
  Country: None (occurrence: None)
  Receive Date: 20050328
  Receipt Date: 20040521
  Transmission Date: 20050727
  Serious: Yes (Other)
  Sender: FDA-Public Use
  Company Number: 200411759JP

PATIENT
  Sex: Female

DRUGS (1)
  1. AMARYL [Suspect]
     Dosage: DOSE: UNK
     Route: 048

REACTIONS (2)
  - IDIOPATHIC THROMBOCYTOPENIC PURPURA [None]
  - VASCULAR PURPURA [None]
